FAERS Safety Report 5671863-7 (Version None)
Quarter: 2008Q1

REPORT INFORMATION
  Report Type: 
  Country: None (occurrence: None)
  Receive Date: 20080317
  Receipt Date: 20080317
  Transmission Date: 20080703
  Serious: Yes (Other)
  Sender: FDA-Public Use
  Company Number: None

PATIENT
  Age: 30 Year
  Sex: Female
  Weight: 79.3795 kg

DRUGS (1)
  1. CYMBALTA [Suspect]
     Indication: DEPRESSION
     Dosage: ONE PILL ONCE DAILY PO
     Route: 048
     Dates: start: 20070201, end: 20080314

REACTIONS (16)
  - ABDOMINAL PAIN UPPER [None]
  - DIARRHOEA [None]
  - DISORIENTATION [None]
  - DRUG DEPENDENCE [None]
  - EMOTIONAL DISTRESS [None]
  - FAMILY STRESS [None]
  - FATIGUE [None]
  - FEELING ABNORMAL [None]
  - HYPERACUSIS [None]
  - INFLUENZA LIKE ILLNESS [None]
  - LETHARGY [None]
  - MOOD ALTERED [None]
  - PARALYSIS [None]
  - PERSONALITY CHANGE [None]
  - UNEVALUABLE EVENT [None]
  - WEIGHT INCREASED [None]
